FAERS Safety Report 15337779 (Version 1)
Quarter: 2018Q3

REPORT INFORMATION
  Report Type: Spontaneous
  Country: US (occurrence: US)
  Receive Date: 20180827
  Receipt Date: 20180827
  Transmission Date: 20181010
  Serious: Yes (Life-Threatening)
  Sender: FDA-Public Use
  Company Number: None

PATIENT
  Age: 72 Year
  Sex: Male
  Weight: 99.5 kg

DRUGS (2)
  1. CEFDINIR. [Concomitant]
     Active Substance: CEFDINIR
  2. AZITHROMYCIN ANHYDROUS. [Suspect]
     Active Substance: AZITHROMYCIN ANHYDROUS
     Indication: PNEUMONIA
     Route: 048

REACTIONS (5)
  - Hypocalcaemia [None]
  - Mental status changes [None]
  - Hypokalaemia [None]
  - Loss of consciousness [None]
  - Electrocardiogram QT prolonged [None]

NARRATIVE: CASE EVENT DATE: 20180825
